FAERS Safety Report 6848093-6 (Version None)
Quarter: 2010Q3

REPORT INFORMATION
  Report Type: 
  Country: None (occurrence: None)
  Receive Date: 20100716
  Receipt Date: 20100624
  Transmission Date: 20110219
  Serious: Yes (Hospitalization)
  Sender: FDA-Public Use
  Company Number: A0857141A

PATIENT
  Age: 61 Year
  Sex: Female

DRUGS (14)
  1. AVANDIA [Suspect]
     Indication: DIABETES MELLITUS
     Dosage: 8MG PER DAY
     Route: 048
     Dates: start: 19990501, end: 20030501
  2. LIPITOR [Concomitant]
  3. WELLBUTRIN [Concomitant]
  4. ZYPREXA [Concomitant]
  5. TUMS [Concomitant]
  6. ASPIRIN [Concomitant]
  7. TOPROL-XL [Concomitant]
  8. ALBUTEROL [Concomitant]
  9. LASIX [Concomitant]
  10. NORVASC [Concomitant]
  11. PREMARIN [Concomitant]
  12. NITROGLYCERIN [Concomitant]
     Route: 060
  13. MOM [Concomitant]
  14. TYLENOL [Concomitant]

REACTIONS (7)
  - ACUTE PULMONARY OEDEMA [None]
  - CARDIAC ARREST [None]
  - HYPOXIA [None]
  - MYOCARDIAL INFARCTION [None]
  - RENAL FAILURE [None]
  - RESPIRATORY ARREST [None]
  - VENTRICULAR TACHYCARDIA [None]
